FAERS Safety Report 15960046 (Version 8)
Quarter: 2019Q3

REPORT INFORMATION
  Report Type: Spontaneous
  Country: JP (occurrence: JP)
  Receive Date: 20190214
  Receipt Date: 20190902
  Transmission Date: 20191004
  Serious: Yes (Hospitalization, Other)
  Sender: FDA-Public Use
  Company Number: JP-AMGEN-JPNSP2019021257

PATIENT
  Age: 73 Year
  Sex: Female
  Weight: 36 kg

DRUGS (7)
  1. CALTAN [Suspect]
     Active Substance: CALCIUM CARBONATE
     Indication: HYPERPHOSPHATAEMIA
     Dosage: 500 MG
     Route: 048
     Dates: start: 20180621
  2. OXAROL [Concomitant]
     Active Substance: MAXACALCITOL
     Dosage: UNK, 3 TIMES/WK (2.5 MUG)
     Route: 042
     Dates: start: 20171020
  3. PARSABIV [Suspect]
     Active Substance: ETELCALCETIDE HYDROCHLORIDE
     Indication: HYPERPARATHYROIDISM SECONDARY
     Dosage: 5 MILLIGRAM, 3 TIMES/WK (5 MG, Q56H)
     Route: 010
     Dates: start: 20180508
  4. TAKECAB [Concomitant]
     Active Substance: VONOPRAZAN FUMURATE
     Indication: GASTROOESOPHAGEAL REFLUX DISEASE
     Dosage: 10 MILLIGRAM
     Route: 048
  5. VALSARTAN. [Concomitant]
     Active Substance: VALSARTAN
     Indication: HYPERTENSION
     Dosage: 160 MILLIGRAM
     Route: 048
  6. ADALAT [Concomitant]
     Active Substance: NIFEDIPINE
     Indication: HYPERTENSION
     Dosage: 40 MILLIGRAM
     Route: 048
  7. EPOGIN [Concomitant]
     Active Substance: ERYTHROPOIETIN
     Dosage: 1500 DOSAGE FORM
     Route: 065

REACTIONS (2)
  - Shunt stenosis [Recovering/Resolving]
  - Pneumonia [Recovering/Resolving]

NARRATIVE: CASE EVENT DATE: 20180918
